FAERS Safety Report 17681400 (Version 4)
Quarter: 2020Q2

REPORT INFORMATION
  Report Type: Spontaneous
  Country: US (occurrence: US)
  Receive Date: 20200417
  Receipt Date: 20200430
  Transmission Date: 20200714
  Serious: Yes (Other)
  Sender: FDA-Public Use
  Company Number: US-BIOGEN-2020BI00861243

PATIENT
  Age: 47 Year
  Sex: Female

DRUGS (4)
  1. VUMERITY [Suspect]
     Active Substance: DIROXIMEL FUMARATE
     Route: 065
     Dates: start: 20200324
  2. VUMERITY [Suspect]
     Active Substance: DIROXIMEL FUMARATE
     Dosage: STARTING DOSE
     Route: 065
     Dates: end: 20200330
  3. VUMERITY [Suspect]
     Active Substance: DIROXIMEL FUMARATE
     Dosage: STARTING DOSE
     Route: 065
     Dates: start: 20200331
  4. VUMERITY [Suspect]
     Active Substance: DIROXIMEL FUMARATE
     Indication: MULTIPLE SCLEROSIS
     Dosage: STARTING DOSE
     Route: 065
     Dates: start: 20200324

REACTIONS (8)
  - Gait inability [Not Recovered/Not Resolved]
  - Fall [Recovered/Resolved]
  - Blood disorder [Unknown]
  - Multiple sclerosis relapse [Recovered/Resolved]
  - Postoperative thrombosis [Unknown]
  - Dysarthria [Not Recovered/Not Resolved]
  - Loss of control of legs [Not Recovered/Not Resolved]
  - White blood cell count decreased [Unknown]

NARRATIVE: CASE EVENT DATE: 20200404
